FAERS Safety Report 12577276 (Version 1)
Quarter: 2016Q3

REPORT INFORMATION
  Report Type: Spontaneous
  Country: US (occurrence: US)
  Receive Date: 20160720
  Receipt Date: 20160720
  Transmission Date: 20161109
  Serious: No
  Sender: FDA-Public Use
  Company Number: US-PERRIGO-15US012385

PATIENT
  Age: 35 Year
  Sex: Female
  Weight: 71.66 kg

DRUGS (2)
  1. MONTELUKAST                        /01362602/ [Concomitant]
     Indication: SINUS DISORDER
     Dosage: UNK
     Route: 065
     Dates: start: 2014
  2. MICONAZOLE 1 [Suspect]
     Active Substance: MICONAZOLE NITRATE
     Indication: VULVOVAGINAL MYCOTIC INFECTION
     Dosage: 1200 MG, SINGLE
     Route: 067
     Dates: start: 20151119, end: 20151119

REACTIONS (4)
  - Drug ineffective [Unknown]
  - Vulvovaginal mycotic infection [None]
  - Fungal skin infection [None]
  - Condition aggravated [Not Recovered/Not Resolved]

NARRATIVE: CASE EVENT DATE: 20151119
